FAERS Safety Report 8910688 (Version 1)
Quarter: 2012Q4

REPORT INFORMATION
  Report Type: Spontaneous
  Country: ES (occurrence: None)
  Receive Date: 20121107
  Receipt Date: 20121107
  Transmission Date: 20130627
  Serious: Yes (Other)
  Sender: FDA-Public Use
  Company Number: FK201203269

PATIENT
  Age: 53 Year
  Sex: Male
  Weight: 50 kg

DRUGS (2)
  1. INTRALIPID [Suspect]
     Indication: MALNUTRITION
     Dosage: 1 in 1 D (not otherwise specified)
     Route: 042
     Dates: start: 20120426, end: 20120426
  2. PYRIDOXINE HYDROCHLORIDE [Concomitant]

REACTIONS (1)
  - Rash generalised [None]
